FAERS Safety Report 9649004 (Version 2)
Quarter: 2014Q1

REPORT INFORMATION
  Report Type: Spontaneous
  Country: US (occurrence: None)
  Receive Date: 20131018
  Receipt Date: 20140122
  Transmission Date: 20141002
  Serious: Yes (Other)
  Sender: FDA-Public Use
  Company Number: AEGR000099

PATIENT
  Age: 65 Year
  Sex: Female
  Weight: 74.8 kg

DRUGS (14)
  1. JUXTAPID [Suspect]
     Indication: TYPE IIA HYPERLIPIDAEMIA
     Route: 048
     Dates: start: 20130724, end: 2013
  2. POTASSIUM CHLORIDE (POTASSIUM CHLORIDE) [Concomitant]
  3. NITROGLYCERIN (NITROGLYCERIN) [Concomitant]
  4. LISINOPRIL (LISINOPRIL DIHYDRATE) [Concomitant]
  5. FUROSEMIDE (FUROSEMIDE SODIUM) [Concomitant]
  6. AMIODARONE (AMIODARONE HYDROXHLORIDE) [Concomitant]
  7. ALPRAZOLAM (ALPRAZOLAM) [Concomitant]
  8. ASPIRIN (ACETYLSALICYLIC) [Concomitant]
  9. HYDROCODONE/ACETAMINOPHEN (HYDROCODONE, PARACETAMOL) [Concomitant]
  10. METOPROLOL SUCCINATE ER (METOPROLOL SUCCINATE) [Concomitant]
  11. XANAX (ALPRAZOLAM) [Concomitant]
  12. HYDROCHLOROTHIAZIDE (HYDROCHLOROTHIAZIDE) [Concomitant]
  13. SYNTHROID (LEVITHYROXINE SODIUM) [Concomitant]
  14. COUMADIN (WARFARIN SODIUM) [Concomitant]

REACTIONS (5)
  - Abdominal discomfort [None]
  - Abdominal pain upper [None]
  - Weight increased [None]
  - Joint swelling [None]
  - Urticaria [None]
